FAERS Safety Report 5476329-5 (Version None)
Quarter: 2007Q4

REPORT INFORMATION
  Report Type: 
  Country: None (occurrence: None)
  Receive Date: 20071003
  Receipt Date: 20071002
  Transmission Date: 20080405
  Serious: Yes (Other)
  Sender: FDA-Public Use
  Company Number: US-GENENTECH-240892

PATIENT
  Sex: Male
  Weight: 34 kg

DRUGS (5)
  1. SOMATROPIN [Suspect]
     Indication: ASTROCYTOMA
     Dosage: 1.2 MG, 7/WEEK
     Route: 058
     Dates: start: 20061109, end: 20070424
  2. ABILIFY [Concomitant]
     Indication: DRUG USE FOR UNKNOWN INDICATION
     Dosage: 20 MG, QAM
     Route: 048
     Dates: start: 20040601
  3. LAMICTAL [Concomitant]
     Indication: DRUG USE FOR UNKNOWN INDICATION
     Dosage: 300 MG, QD
     Route: 048
     Dates: start: 20050801
  4. LITHIUM CARBONATE [Concomitant]
     Indication: DRUG USE FOR UNKNOWN INDICATION
     Dosage: 750 MG, QD
     Route: 048
     Dates: start: 20060101
  5. SEROQUEL [Concomitant]
     Indication: DRUG USE FOR UNKNOWN INDICATION
     Dosage: 100 MG, QAM
     Route: 042
     Dates: start: 20041001

REACTIONS (1)
  - ASTROCYTOMA [None]
